FAERS Safety Report 17930639 (Version 1)
Quarter: 2020Q2

REPORT INFORMATION
  Report Type: Spontaneous
  Country: US (occurrence: US)
  Receive Date: 20200623
  Receipt Date: 20200623
  Transmission Date: 20200714
  Serious: No
  Sender: FDA-Public Use
  Company Number: US-TEVA-2020-US-1790384

PATIENT
  Sex: Female

DRUGS (1)
  1. TAMOXIFEN CITRATE. [Suspect]
     Active Substance: TAMOXIFEN CITRATE
     Indication: BREAST CANCER FEMALE
     Dosage: USING FOR 5 YEARS
     Route: 065

REACTIONS (3)
  - Retching [Unknown]
  - Wrong technique in product usage process [Unknown]
  - Product use complaint [Unknown]
